FAERS Safety Report 7854133-8 (Version None)
Quarter: 2011Q4

REPORT INFORMATION
  Report Type: 
  Country: None (occurrence: None)
  Receive Date: 20111026
  Receipt Date: 20111019
  Transmission Date: 20120403
  Serious: Yes (Hospitalization)
  Sender: FDA-Public Use
  Company Number: FR-BAXTER-2011BH033248

PATIENT
  Age: 6 Year
  Sex: Male
  Weight: 29 kg

DRUGS (5)
  1. DOXORUBICIN HCL [Suspect]
     Indication: SARCOMA METASTATIC
     Route: 042
     Dates: start: 20110227
  2. BEVACIZUMAB [Suspect]
     Indication: SARCOMA METASTATIC
     Route: 042
     Dates: start: 20100227
  3. DACTINOMYCIN [Suspect]
     Indication: SARCOMA METASTATIC
     Route: 042
     Dates: start: 20100227
  4. IFOSFAMIDE [Suspect]
     Indication: SARCOMA METASTATIC
     Route: 042
     Dates: start: 20100227
  5. VINCRISTINE SULFATE [Suspect]
     Indication: SARCOMA METASTATIC
     Route: 042
     Dates: start: 20100227

REACTIONS (2)
  - TUMOUR NECROSIS [None]
  - FEBRILE BONE MARROW APLASIA [None]
